FAERS Safety Report 21376334 (Version 2)
Quarter: 2022Q4

REPORT INFORMATION
  Report Type: Report from Study
  Country: US (occurrence: US)
  Receive Date: 20220926
  Receipt Date: 20221008
  Transmission Date: 20230113
  Serious: Yes (Hospitalization)
  Sender: FDA-Public Use
  Company Number: None

PATIENT
  Sex: Male

DRUGS (1)
  1. RINVOQ [Suspect]
     Active Substance: UPADACITINIB
     Indication: Product used for unknown indication
     Route: 048

REACTIONS (7)
  - Wound [Recovered/Resolved]
  - Bacterial infection [Recovered/Resolved]
  - Ulcer [Not Recovered/Not Resolved]
  - Eye swelling [Not Recovered/Not Resolved]
  - Impetigo [Not Recovered/Not Resolved]
  - Cheilitis [Not Recovered/Not Resolved]
  - COVID-19 [Recovered/Resolved]
